FAERS Safety Report 6816496-1 (Version None)
Quarter: 2010Q3

REPORT INFORMATION
  Report Type: 
  Country: None (occurrence: None)
  Receive Date: 20100705
  Receipt Date: 20100625
  Transmission Date: 20110219
  Serious: Yes (Death, Other)
  Sender: FDA-Public Use
  Company Number: NL-SANOFI-AVENTIS-2010SA024155

PATIENT
  Sex: Male

DRUGS (5)
  1. OXALIPLATIN [Suspect]
     Indication: PRODUCT USED FOR UNKNOWN INDICATION
     Route: 065
  2. OXALIPLATIN [Suspect]
     Route: 065
  3. XELODA [Suspect]
  4. XELODA [Suspect]
  5. ANTIHYPERTENSIVES (NOS) [Concomitant]

REACTIONS (2)
  - DIARRHOEA [None]
  - PNEUMONIA ASPIRATION [None]
